FAERS Safety Report 23903415 (Version 3)
Quarter: 2024Q4

REPORT INFORMATION
  Report Type: Report from Study
  Country: AU (occurrence: AU)
  Receive Date: 20240527
  Receipt Date: 20241128
  Transmission Date: 20250115
  Serious: Yes (Other)
  Sender: ROCHE
  Company Number: AU-ROCHE-3197784

PATIENT
  Age: 54 Year
  Sex: Male
  Weight: 70.0 kg

DRUGS (5)
  1. OCRELIZUMAB [Suspect]
     Active Substance: OCRELIZUMAB
     Indication: Multiple sclerosis
     Route: 042
  2. OCRELIZUMAB [Suspect]
     Active Substance: OCRELIZUMAB
     Route: 042
  3. OCRELIZUMAB [Suspect]
     Active Substance: OCRELIZUMAB
     Route: 042
  4. OCRELIZUMAB [Suspect]
     Active Substance: OCRELIZUMAB
     Route: 042
     Dates: start: 2018
  5. TYSABRI [Concomitant]
     Active Substance: NATALIZUMAB

REACTIONS (17)
  - Mobility decreased [Not Recovered/Not Resolved]
  - Neurological decompensation [Not Recovered/Not Resolved]
  - Skin ulcer [Not Recovered/Not Resolved]
  - Muscular weakness [Not Recovered/Not Resolved]
  - Sensory loss [Not Recovered/Not Resolved]
  - Muscle spasms [Recovered/Resolved]
  - Muscle twitching [Recovered/Resolved]
  - Limb injury [Recovering/Resolving]
  - Multiple sclerosis [Not Recovered/Not Resolved]
  - Skin necrosis [Unknown]
  - Muscular weakness [Unknown]
  - Mobility decreased [Unknown]
  - Intestinal fistula [Unknown]
  - Muscular weakness [Unknown]
  - Venous occlusion [Unknown]
  - Grip strength decreased [Unknown]
  - Sensory disturbance [Unknown]

NARRATIVE: CASE EVENT DATE: 20221010
